FAERS Safety Report 20429868 (Version 1)
Quarter: 2022Q1

REPORT INFORMATION
  Report Type: Report from Study
  Country: US (occurrence: US)
  Receive Date: 20220204
  Receipt Date: 20220204
  Transmission Date: 20220423
  Serious: Yes (Life-Threatening, Hospitalization)
  Sender: FDA-Public Use
  Company Number: US-SERVIER-S18010556

PATIENT

DRUGS (14)
  1. ONCASPAR [Suspect]
     Active Substance: PEGASPARGASE
     Indication: T-cell type acute leukaemia
     Dosage: 2500UI/M2, EVERY 2WEEKS AFTER PREVIOUS DOSE GIVEN IN CNS, UNTIL 15 TOTAL DOSES
     Route: 042
     Dates: start: 20180524, end: 20181115
  2. CLONIDINE [Suspect]
     Active Substance: CLONIDINE
     Indication: Hypertension
     Dosage: UNK
     Route: 062
     Dates: start: 201805, end: 20181120
  3. DOXORUBICIN [Suspect]
     Active Substance: DOXORUBICIN
     Indication: T-cell type acute leukaemia
     Dosage: 30 MG/M2, OTHER
     Route: 042
     Dates: start: 20180522, end: 20181120
  4. VINCRISTINE [Suspect]
     Active Substance: VINCRISTINE
     Indication: T-cell type acute leukaemia
     Dosage: 2 MG/M2, OTHER
     Route: 042
     Dates: start: 20180522, end: 20181120
  5. DEXRAZOXANE [Suspect]
     Active Substance: DEXRAZOXANE
     Indication: T-cell type acute leukaemia
     Dosage: 300 MG/M2, OTHER
     Route: 042
     Dates: start: 20180522, end: 20181120
  6. METHOTREXATE [Suspect]
     Active Substance: METHOTREXATE
     Indication: T-cell type acute leukaemia
     Dosage: 12 MG, OTHER
     Route: 037
     Dates: start: 20180506, end: 20181120
  7. CYTARABINE [Suspect]
     Active Substance: CYTARABINE
     Indication: T-cell type acute leukaemia
     Dosage: 40 MG, OTHER
     Route: 037
     Dates: start: 20180519, end: 20181120
  8. HYDROCORTISONE [Suspect]
     Active Substance: HYDROCORTISONE
     Indication: T-cell type acute leukaemia
     Dosage: 15 MG, OTHER
     Route: 037
     Dates: start: 20180506, end: 20181120
  9. TN UNSPECIFIED [Concomitant]
     Indication: T-cell type acute leukaemia
     Dosage: 50 MG/M2, OTHER
     Route: 048
     Dates: start: 20180712, end: 20181124
  10. LOVENOX [Concomitant]
     Active Substance: ENOXAPARIN SODIUM
     Indication: Product used for unknown indication
     Route: 065
  11. TN UNSPECIFIED [Concomitant]
     Indication: T-cell type acute leukaemia
     Dosage: 6 MG/M2, OTHER
     Route: 048
     Dates: start: 20180519, end: 20181124
  12. KYTRIL [Concomitant]
     Active Substance: GRANISETRON HYDROCHLORIDE
     Indication: Product used for unknown indication
     Route: 065
  13. ATIVAN [Concomitant]
     Active Substance: LORAZEPAM
     Indication: Product used for unknown indication
     Route: 065
  14. PROTONIX [Concomitant]
     Active Substance: PANTOPRAZOLE SODIUM
     Indication: Product used for unknown indication
     Route: 065

REACTIONS (3)
  - Hypertension [Recovering/Resolving]
  - Seizure [Recovered/Resolved]
  - Pancreatitis [Recovering/Resolving]

NARRATIVE: CASE EVENT DATE: 20181125
